FAERS Safety Report 9571159 (Version 2)
Quarter: 2013Q4

REPORT INFORMATION
  Report Type: Spontaneous
  Country: US (occurrence: None)
  Receive Date: 20130927
  Receipt Date: 20131021
  Transmission Date: 20140711
  Serious: Yes (Other)
  Sender: FDA-Public Use
  Company Number: 2013SA093672

PATIENT
  Age: 79 Year
  Sex: Female
  Weight: 68.94 kg

DRUGS (4)
  1. CAPZASIN [Suspect]
     Indication: MUSCULOSKELETAL PAIN
  2. CAPZASIN [Suspect]
     Indication: MONARTHRITIS
  3. LEVOXYL [Concomitant]
  4. COZAAR [Concomitant]

REACTIONS (3)
  - Application site pain [None]
  - Application site erythema [None]
  - Thermal burn [None]
